FAERS Safety Report 7119268-6 (Version None)
Quarter: 2010Q4

REPORT INFORMATION
  Report Type: 
  Country: None (occurrence: None)
  Receive Date: 20101123
  Receipt Date: 20101112
  Transmission Date: 20110411
  Serious: Yes (Hospitalization, Other)
  Sender: FDA-Public Use
  Company Number: US-ELI_LILLY_AND_COMPANY-US201011003708

PATIENT
  Sex: Female

DRUGS (2)
  1. HUMALOG MIX 75/25 [Suspect]
     Indication: DIABETES MELLITUS
     Dosage: 30 U, EACH MORNING
     Dates: start: 19951101
  2. HUMALOG MIX 75/25 [Suspect]
     Dosage: 25 U, EACH EVENING
     Dates: start: 19951101

REACTIONS (7)
  - BLINDNESS UNILATERAL [None]
  - BLOOD GLUCOSE INCREASED [None]
  - CATARACT [None]
  - DRUG INEFFECTIVE [None]
  - INCORRECT DOSE ADMINISTERED [None]
  - MACULAR DEGENERATION [None]
  - RENAL IMPAIRMENT [None]
